FAERS Safety Report 8253513-9 (Version None)
Quarter: 2012Q2

REPORT INFORMATION
  Report Type: 
  Country: None (occurrence: None)
  Receive Date: 20120402
  Receipt Date: 20120305
  Transmission Date: 20120825
  Serious: No
  Sender: FDA-Public Use
  Company Number: US-AMGEN-USASP2012014647

PATIENT
  Age: 19 Year
  Sex: Female

DRUGS (2)
  1. ENBREL [Suspect]
     Indication: JUVENILE ARTHRITIS
     Dosage: 25 MG, 2 TIMES/WK
     Dates: start: 20110513
  2. METHOTREXATE [Concomitant]
     Dosage: 2 MG, UNK WEEKLY
     Dates: start: 20110501

REACTIONS (6)
  - DEPRESSED MOOD [None]
  - AGGRESSION [None]
  - JUVENILE ARTHRITIS [None]
  - FEELING ABNORMAL [None]
  - WEIGHT INCREASED [None]
  - DRUG INEFFECTIVE [None]
